FAERS Safety Report 8559370-5 (Version None)
Quarter: 2012Q3

REPORT INFORMATION
  Report Type: 
  Country: None (occurrence: None)
  Receive Date: 20120720
  Receipt Date: 20120705
  Transmission Date: 20120928
  Serious: No
  Sender: FDA-Public Use
  Company Number: TPA2012A04495

PATIENT
  Sex: Female

DRUGS (1)
  1. ADENURIC (FEBUXOSTAT) [Suspect]
     Dosage: ORAL
     Route: 048

REACTIONS (2)
  - RASH [None]
  - CIRCULATORY COLLAPSE [None]
